FAERS Safety Report 10246381 (Version 1)
Quarter: 2014Q2

REPORT INFORMATION
  Report Type: Spontaneous
  Country: US (occurrence: US)
  Receive Date: 20140619
  Receipt Date: 20140619
  Transmission Date: 20141212
  Serious: No
  Sender: FDA-Public Use
  Company Number: US-PFIZER INC-2014164756

PATIENT
  Age: 64 Year
  Sex: Male

DRUGS (5)
  1. SUTENT [Suspect]
     Indication: RENAL CANCER
     Dosage: 50 MG, UNK
     Dates: start: 20140327
  2. PRILOSEC [Concomitant]
     Dosage: UNK
  3. LACTULOSE [Concomitant]
     Dosage: UNK
  4. ENOXAPARIN SODIUM [Concomitant]
     Dosage: UNK
  5. LIDOCAINE [Concomitant]
     Dosage: UNK

REACTIONS (2)
  - Disease progression [Unknown]
  - Renal cancer [Unknown]
